FAERS Safety Report 6102128-7 (Version None)
Quarter: 2009Q1

REPORT INFORMATION
  Report Type: 
  Country: None (occurrence: None)
  Receive Date: 20090304
  Receipt Date: 20090225
  Transmission Date: 20090719
  Serious: Yes (Hospitalization)
  Sender: FDA-Public Use
  Company Number: JP-MERCK-0902USA04264

PATIENT
  Age: 90 Year
  Sex: Female

DRUGS (5)
  1. PEPCID RPD [Suspect]
     Indication: GASTRITIS
     Route: 048
     Dates: end: 20090218
  2. TEGRETOL [Suspect]
     Route: 048
     Dates: end: 20090218
  3. LASIX [Concomitant]
     Route: 048
  4. ALDACTONE INJECTION [Concomitant]
     Route: 065
  5. SELBEX [Concomitant]
     Route: 048

REACTIONS (1)
  - INTERSTITIAL LUNG DISEASE [None]
